FAERS Safety Report 24741113 (Version 2)
Quarter: 2025Q1

REPORT INFORMATION
  Report Type: Spontaneous
  Country: CA (occurrence: CA)
  Receive Date: 20241217
  Receipt Date: 20250129
  Transmission Date: 20250409
  Serious: Yes (Other)
  Sender: ROCHE
  Company Number: CA-ROCHE-10000156472

PATIENT
  Age: 21 Year
  Sex: Female

DRUGS (1)
  1. RITUXIMAB [Suspect]
     Active Substance: RITUXIMAB
     Indication: Relapsing-remitting multiple sclerosis
     Route: 040

REACTIONS (5)
  - Infection [Unknown]
  - Multiple sclerosis pseudo relapse [Unknown]
  - Off label use [Unknown]
  - Pneumonia [Unknown]
  - Circumstance or information capable of leading to medication error [Unknown]
